FAERS Safety Report 9841690 (Version 2)
Quarter: 2014Q1

REPORT INFORMATION
  Report Type: Spontaneous
  Country: GB (occurrence: GB)
  Receive Date: 20140124
  Receipt Date: 20140328
  Transmission Date: 20141002
  Serious: Yes (Hospitalization)
  Sender: FDA-Public Use
  Company Number: GB-BAUSCH-BL-2014-000182

PATIENT
  Age: 55 Year
  Sex: Female
  Weight: 56 kg

DRUGS (17)
  1. DEXAMETHASONE [Suspect]
     Indication: PRODUCT USED FOR UNKNOWN INDICATION
     Dates: start: 20130711, end: 20130719
  2. DICLOFENAC [Suspect]
     Indication: PRODUCT USED FOR UNKNOWN INDICATION
     Dates: start: 20130711, end: 20130719
  3. AFINITOR [Suspect]
     Indication: BREAST CANCER METASTATIC
     Route: 048
     Dates: start: 20130307, end: 20130710
  4. EXEMESTANE [Suspect]
     Indication: BREAST CANCER METASTATIC
     Route: 048
     Dates: start: 20130307, end: 20130710
  5. CYCLIZINE [Concomitant]
     Indication: ANTIEMETIC SUPPORTIVE CARE
     Route: 048
     Dates: start: 20130313
  6. FENTANYL [Concomitant]
     Indication: ANALGESIC THERAPY
     Dates: start: 20130607
  7. FENTANYL [Concomitant]
     Dates: start: 20130723
  8. OMEPRAZOLE [Concomitant]
     Indication: PROPHYLAXIS
     Route: 048
     Dates: start: 20130605
  9. OMEPRAZOLE [Concomitant]
     Dates: start: 20130719
  10. OMEPRAZOLE [Concomitant]
  11. ORAMORPH [Concomitant]
     Indication: ANALGESIC THERAPY
     Dates: start: 20130313
  12. PARACETAMOL [Concomitant]
     Indication: ANALGESIC THERAPY
     Route: 048
     Dates: start: 20130513
  13. PARACETAMOL [Concomitant]
     Route: 048
     Dates: start: 20130719
  14. PREGABALIN [Concomitant]
     Indication: NEURALGIA
     Route: 048
     Dates: start: 20130717
  15. PREGABALIN [Concomitant]
     Route: 048
     Dates: start: 20130719
  16. VOLTAROL [Concomitant]
     Indication: ANALGESIC THERAPY
     Route: 048
  17. ZOPICLONE [Concomitant]
     Indication: INSOMNIA
     Route: 048
     Dates: start: 20130408

REACTIONS (2)
  - Gastric ulcer [Recovering/Resolving]
  - Colitis [Not Recovered/Not Resolved]
